FAERS Safety Report 13434285 (Version 1)
Quarter: 2017Q2

REPORT INFORMATION
  Report Type: Spontaneous
  Country: US (occurrence: US)
  Receive Date: 20170412
  Receipt Date: 20170412
  Transmission Date: 20170830
  Serious: Yes (Death)
  Sender: FDA-Public Use
  Company Number: None

PATIENT
  Age: 23 Year
  Sex: Male

DRUGS (1)
  1. TOBRAMYCIN 300MG/5ML NOVARTIS [Suspect]
     Active Substance: TOBRAMYCIN
     Indication: LUNG DISORDER
     Route: 055
     Dates: start: 20161202, end: 20170315

REACTIONS (1)
  - Cardio-respiratory arrest [None]

NARRATIVE: CASE EVENT DATE: 20170315
